FAERS Safety Report 6453255-6 (Version None)
Quarter: 2009Q4

REPORT INFORMATION
  Report Type: 
  Country: None (occurrence: None)
  Receive Date: 20091124
  Receipt Date: 20091116
  Transmission Date: 20100525
  Serious: No
  Sender: FDA-Public Use
  Company Number: US-BAYER-200939723NA

PATIENT
  Sex: Female

DRUGS (1)
  1. MIRENA [Suspect]
     Indication: DRUG USE FOR UNKNOWN INDICATION
     Dosage: CONTINUOUS
     Route: 015
     Dates: start: 20080301

REACTIONS (5)
  - CHILLS [None]
  - CHROMATURIA [None]
  - FATIGUE [None]
  - H1N1 INFLUENZA [None]
  - NIGHT SWEATS [None]
